FAERS Safety Report 6486460-3 (Version None)
Quarter: 2009Q4

REPORT INFORMATION
  Report Type: 
  Country: None (occurrence: None)
  Receive Date: 20091210
  Receipt Date: 20091201
  Transmission Date: 20100525
  Serious: Yes (Life-Threatening, Hospitalization)
  Sender: FDA-Public Use
  Company Number: FR-KINGPHARMUSA00001-K200901476

PATIENT
  Age: 71 Year
  Sex: Male
  Weight: 96 kg

DRUGS (7)
  1. ALTACE [Suspect]
     Indication: HYPERTENSION
     Dosage: 5 MG, QD
     Route: 048
     Dates: start: 20080601, end: 20090925
  2. SPIRONOLACTONE [Suspect]
     Indication: CIRRHOSIS ALCOHOLIC
     Dosage: 100 MG, BID
     Route: 048
     Dates: start: 20080601, end: 20090925
  3. TORSEMIDE [Suspect]
     Indication: HYPERTENSION
     Dosage: 10 MG, QD
     Route: 048
     Dates: start: 20080601, end: 20090901
  4. TORSEMIDE [Suspect]
     Dosage: 5 MG, QD
     Route: 048
     Dates: start: 20090925
  5. OBSIDAN [Suspect]
     Indication: HYPERTENSION
     Dosage: 12.5 MG, TID
     Route: 048
     Dates: start: 20080601, end: 20090901
  6. OBSIDAN [Suspect]
     Dosage: 12.5 MG, QD
     Route: 048
     Dates: start: 20090925
  7. OMEP [Concomitant]
     Dosage: UNK
     Dates: start: 20080301, end: 20090925

REACTIONS (7)
  - BRADYARRHYTHMIA [None]
  - DIZZINESS [None]
  - GENERAL PHYSICAL HEALTH DETERIORATION [None]
  - HYPERKALAEMIA [None]
  - HYPOTENSION [None]
  - RENAL FAILURE ACUTE [None]
  - VOMITING [None]
